FAERS Safety Report 18278866 (Version 1)
Quarter: 2020Q3

REPORT INFORMATION
  Report Type: Spontaneous
  Country: GB (occurrence: GB)
  Receive Date: 20200917
  Receipt Date: 20200917
  Transmission Date: 20201103
  Serious: Yes (Hospitalization)
  Sender: FDA-Public Use
  Company Number: GB-ACCORD-201349

PATIENT
  Age: 61 Year
  Sex: Male
  Weight: 73 kg

DRUGS (13)
  1. TACROLIMUS. [Interacting]
     Active Substance: TACROLIMUS
     Indication: PRODUCT USED FOR UNKNOWN INDICATION
  2. AMOXICILLIN. [Concomitant]
     Active Substance: AMOXICILLIN
     Indication: PNEUMONIA
  3. ATENOLOL/ATENOLOL HYDROCHLORIDE [Concomitant]
     Active Substance: ATENOLOL HYDROCHLORIDE
  4. SALBUTAMOL [Concomitant]
     Active Substance: ALBUTEROL
  5. MYCOPHENOLIC ACID. [Concomitant]
     Active Substance: MYCOPHENOLIC ACID
  6. SPIOLTO RESPIMAT [Concomitant]
     Active Substance: OLODATEROL HYDROCHLORIDE\TIOTROPIUM BROMIDE MONOHYDRATE
     Route: 055
  7. ACETYLSALICYLIC ACID [Concomitant]
     Active Substance: ASPIRIN
  8. SIMVASTATIN. [Concomitant]
     Active Substance: SIMVASTATIN
  9. CARBOCISTEINE/CARBOCISTEINE LYSINE/CARBOCISTEINE SODIUM [Concomitant]
     Active Substance: CARBOCYSTEINE
  10. CLARITHROMYCIN/CLARITHROMYCIN LACTOBIONATE [Suspect]
     Active Substance: CLARITHROMYCIN LACTOBIONATE
     Indication: PNEUMONIA
     Route: 048
     Dates: start: 20200812, end: 20200813
  11. AMLODIPINE [Concomitant]
     Active Substance: AMLODIPINE BESYLATE
  12. OMEPRAZOLE. [Concomitant]
     Active Substance: OMEPRAZOLE
  13. RAMIPRIL. [Concomitant]
     Active Substance: RAMIPRIL

REACTIONS (2)
  - Immunosuppressant drug level increased [Unknown]
  - Potentiating drug interaction [Unknown]

NARRATIVE: CASE EVENT DATE: 20200814
